FAERS Safety Report 6067833-X (Version None)
Quarter: 2009Q1

REPORT INFORMATION
  Report Type: 
  Country: None (occurrence: None)
  Receive Date: 20090202
  Receipt Date: 20090126
  Transmission Date: 20090719
  Serious: Yes (Hospitalization)
  Sender: FDA-Public Use
  Company Number: TPA2009A00124

PATIENT
  Age: 70 Year
  Sex: Female
  Weight: 50.8029 kg

DRUGS (3)
  1. ACTOS [Suspect]
     Indication: TYPE 2 DIABETES MELLITUS
     Dosage: 45 MG, 1 IN 1 D, ORAL
     Route: 048
     Dates: start: 20081201
  2. JANUVIA (DRUG USED IN DIABETES) [Concomitant]
  3. METFORMIN HCL [Concomitant]

REACTIONS (4)
  - HEART RATE INCREASED [None]
  - JOINT SWELLING [None]
  - URINE OUTPUT DECREASED [None]
  - WEIGHT INCREASED [None]
